FAERS Safety Report 4760649-3 (Version None)
Quarter: 2005Q3

REPORT INFORMATION
  Report Type: 
  Country: None (occurrence: None)
  Receive Date: 20050902
  Receipt Date: 20050518
  Transmission Date: 20060218
  Serious: Yes (Death, Hospitalization)
  Sender: FDA-Public Use
  Company Number: DE-NOVOPROD-244231

PATIENT
  Age: 75 Year
  Sex: Female
  Weight: 91 kg

DRUGS (7)
  1. LEVEMIR [Suspect]
     Indication: INSULIN-REQUIRING TYPE II DIABETES MELLITUS
     Dosage: 20 IU, QD
     Route: 058
     Dates: start: 20041108
  2. LEVEMIR [Suspect]
     Dosage: 24 IU, QD
     Route: 058
  3. ACTRAPID [Concomitant]
     Indication: INSULIN-REQUIRING TYPE II DIABETES MELLITUS
     Dosage: 3 IU, QD
     Route: 058
  4. ASPIRIN [Concomitant]
     Dosage: 1 UNK, QD
     Route: 048
  5. NITRENDIPIN ^APOGEPHA^ [Concomitant]
     Dosage: 1 UNK, BID
     Route: 048
  6. RENTYLIN [Concomitant]
     Dosage: 400 MG, BID
     Route: 048
  7. BRISERIN [Concomitant]
     Dosage: 1 UNK, QD
     Route: 048

REACTIONS (2)
  - FEMORAL ARTERIAL STENOSIS [None]
  - PERIPHERAL OCCLUSIVE DISEASE [None]
